FAERS Safety Report 13587021 (Version 1)
Quarter: 2017Q2

REPORT INFORMATION
  Report Type: Not Available
  Country: AT (occurrence: AT)
  Receive Date: 20170526
  Receipt Date: 20170526
  Transmission Date: 20170830
  Serious: Yes (Other)
  Sender: FDA-Public Use
  Company Number: AT-ANIPHARMA-2017-AT-000004

PATIENT
  Age: 2 Year
  Sex: 0

DRUGS (1)
  1. VALPROIC ACID (NON-SPECIFIC) [Suspect]
     Active Substance: VALPROIC ACID
     Dosage: 107.1 MG/KG
     Route: 048

REACTIONS (2)
  - Seizure [Unknown]
  - Somnolence [Unknown]
